FAERS Safety Report 7707403-8 (Version None)
Quarter: 2011Q3

REPORT INFORMATION
  Report Type: 
  Country: None (occurrence: None)
  Receive Date: 20110824
  Receipt Date: 20110811
  Transmission Date: 20111222
  Serious: Yes (Death, Life-Threatening, Hospitalization)
  Sender: FDA-Public Use
  Company Number: DE-CELGENEUS-062-50794-11062357

PATIENT
  Age: 51 Year
  Sex: Male

DRUGS (10)
  1. CYCLOPHOSPHAMIDE [Concomitant]
     Dates: start: 20110302
  2. NILOTINIB [Concomitant]
     Route: 065
     Dates: start: 20100501
  3. VIDAZA [Suspect]
     Dosage: 100 MILLIGRAM/SQ. METER
     Route: 058
     Dates: start: 20100607
  4. VINDESINE [Concomitant]
     Route: 065
     Dates: start: 20110217, end: 20110223
  5. PEG-ASPARAGINASE [Concomitant]
     Route: 065
     Dates: start: 20110225
  6. CYCLOPHOSPHAMIDE [Concomitant]
     Route: 065
     Dates: start: 20110212, end: 20110216
  7. CYCLOPHOSPHAMIDE [Concomitant]
     Route: 065
     Dates: start: 20110311, end: 20110312
  8. DAUNORUBICIN HCL [Concomitant]
     Route: 065
     Dates: start: 20110217, end: 20110223
  9. NEURONTIN [Concomitant]
     Route: 065
     Dates: end: 20110302
  10. DEXAMETHASONE [Concomitant]
     Route: 065
     Dates: start: 20110212, end: 20110216

REACTIONS (4)
  - PNEUMONIA PRIMARY ATYPICAL [None]
  - FEBRILE BONE MARROW APLASIA [None]
  - PLEURAL EFFUSION [None]
  - ACUTE LYMPHOCYTIC LEUKAEMIA [None]
